FAERS Safety Report 6531625-5 (Version None)
Quarter: 2010Q1

REPORT INFORMATION
  Report Type: 
  Country: None (occurrence: None)
  Receive Date: 20100108
  Receipt Date: 20091229
  Transmission Date: 20100710
  Serious: Yes (Hospitalization)
  Sender: FDA-Public Use
  Company Number: DE-PFIZER INC-2010001455

PATIENT
  Age: 37 Year
  Sex: Female

DRUGS (1)
  1. ATARAX [Suspect]
     Dosage: 5-6 TABLETS OVER 5 HOURS
     Route: 048
     Dates: start: 20091229, end: 20091229

REACTIONS (1)
  - SUICIDE ATTEMPT [None]
